FAERS Safety Report 15006903 (Version 1)
Quarter: 2018Q2

REPORT INFORMATION
  Report Type: Report from Study
  Country: US (occurrence: US)
  Receive Date: 20180613
  Receipt Date: 20180613
  Transmission Date: 20180711
  Serious: No
  Sender: FDA-Public Use
  Company Number: US-US WORLDMEDS, LLC-USW201804-000552

PATIENT
  Age: 71 Year
  Sex: Female

DRUGS (1)
  1. APOKYN [Suspect]
     Active Substance: APOMORPHINE HYDROCHLORIDE
     Indication: PARKINSON^S DISEASE
     Dates: start: 20180317

REACTIONS (7)
  - Fall [Unknown]
  - Depression [Unknown]
  - Drug ineffective [Unknown]
  - Constipation [Recovering/Resolving]
  - Freezing phenomenon [Unknown]
  - Parkinson^s disease [Unknown]
  - Food craving [Unknown]
